FAERS Safety Report 8351481-2 (Version None)
Quarter: 2012Q2

REPORT INFORMATION
  Report Type: 
  Country: None (occurrence: None)
  Receive Date: 20120510
  Receipt Date: 20120425
  Transmission Date: 20120825
  Serious: Yes (Hospitalization, Other)
  Sender: FDA-Public Use
  Company Number: CHPA2012US009958

PATIENT
  Sex: Female

DRUGS (2)
  1. ANTIINFLAMMATORY/ANTIRHEUMATIC PRODUCTS [Concomitant]
     Indication: ARTHRITIS
     Dosage: UNK
     Route: 048
  2. EXCEDRIN (MIGRAINE) [Suspect]
     Indication: ARTHRITIS
     Dosage: 6-10 DF, QD
     Route: 048

REACTIONS (7)
  - DYSPNOEA [None]
  - FALL [None]
  - OVERDOSE [None]
  - CHEST DISCOMFORT [None]
  - PNEUMONIA [None]
  - COUGH [None]
  - INCORRECT DRUG ADMINISTRATION DURATION [None]
